FAERS Safety Report 9085755 (Version 1)
Quarter: 2013Q1

REPORT INFORMATION
  Report Type: Spontaneous
  Country: US (occurrence: US)
  Receive Date: 20130131
  Receipt Date: 20130131
  Transmission Date: 20140127
  Serious: Yes (Hospitalization, Other)
  Sender: FDA-Public Use
  Company Number: US-ROXANE LABORATORIES, INC.-2013-RO-00161RO

PATIENT
  Age: 33 Year
  Sex: Female

DRUGS (9)
  1. PREDNISONE [Suspect]
     Indication: CHRONIC GRAFT VERSUS HOST DISEASE
  2. METHOTREXATE [Suspect]
     Indication: PROPHYLAXIS
  3. TACROLIMUS [Suspect]
     Indication: CHRONIC GRAFT VERSUS HOST DISEASE
  4. TACROLIMUS [Suspect]
     Dosage: 1.5 MG
  5. VORICONAZOLE [Suspect]
     Indication: PROPHYLAXIS
     Dosage: 200 MG
     Route: 048
  6. AMPHOTERICIN B [Suspect]
     Indication: ANTIFUNGAL PROPHYLAXIS
  7. TRIMETHOPRIM-SULFAMETHOXAZOLE [Suspect]
     Indication: PROPHYLAXIS
  8. ACYCLOVIR [Suspect]
     Indication: PROPHYLAXIS
  9. OSELTAMIVIR [Suspect]
     Indication: H1N1 INFLUENZA

REACTIONS (5)
  - Osteomyelitis fungal [Recovered/Resolved]
  - Chronic graft versus host disease [Unknown]
  - H1N1 influenza [Recovered/Resolved]
  - Small intestinal obstruction [Recovered/Resolved]
  - Pyrexia [Recovered/Resolved]
